FAERS Safety Report 7511448-0 (Version None)
Quarter: 2011Q2

REPORT INFORMATION
  Report Type: 
  Country: None (occurrence: None)
  Receive Date: 20110531
  Receipt Date: 20110517
  Transmission Date: 20111010
  Serious: Yes (Other)
  Sender: FDA-Public Use
  Company Number: CN-JNJFOC-20110508444

PATIENT
  Sex: Male

DRUGS (1)
  1. KETOCONAZOLE [Suspect]
     Indication: TINEA PEDIS
     Dosage: 1 GRAM
     Route: 061
     Dates: start: 20110512

REACTIONS (3)
  - PRODUCT COUNTERFEIT [None]
  - SKIN EROSION [None]
  - PRURITUS [None]
